FAERS Safety Report 9419415 (Version 1)
Quarter: 2013Q3

REPORT INFORMATION
  Report Type: Spontaneous
  Country: LK (occurrence: None)
  Receive Date: 20130723
  Receipt Date: 20130723
  Transmission Date: 20140515
  Serious: Yes (Hospitalization)
  Sender: FDA-Public Use
  Company Number: FK201302581

PATIENT
  Age: 6 Year
  Sex: Female
  Weight: 27 kg

DRUGS (11)
  1. VALPROATE [Suspect]
     Indication: COMPLEX PARTIAL SEIZURES
  2. ACETYLCYSTEINE [Suspect]
     Indication: ACUTE HEPATIC FAILURE
  3. LEVOCARNITINE [Suspect]
     Indication: ACUTE HEPATIC FAILURE
     Route: 042
  4. LACTULOSE (LACTULOSE) [Concomitant]
  5. BROAD SPECTRUM ANTIBIOTICS (ANTIBIOTICS) [Concomitant]
  6. FRESH FROZEN PLASMA [Concomitant]
  7. MANNITOL (MANNITOL) [Concomitant]
  8. PHOSPHATE ENEMA (PHOSPHORIC ACID SODIUM) [Concomitant]
  9. HYDRALAZINE (HYDRALAZINE) [Concomitant]
  10. MAGNESIUM SULFATE (MAGNESIUM SULFATE) [Concomitant]
  11. MIDAZOLAM (MIDAZOLAM) [Concomitant]

REACTIONS (4)
  - Posterior reversible encephalopathy syndrome [None]
  - Acute hepatic failure [None]
  - Hepatic encephalopathy [None]
  - Hepatotoxicity [None]
